FAERS Safety Report 18104567 (Version 2)
Quarter: 2020Q3

REPORT INFORMATION
  Report Type: Report from Study
  Country: US (occurrence: US)
  Receive Date: 20200803
  Receipt Date: 20200807
  Transmission Date: 20201103
  Serious: Yes (Hospitalization)
  Sender: FDA-Public Use
  Company Number: US-JNJFOC-20200736189

PATIENT
  Age: 53 Year
  Sex: Female

DRUGS (2)
  1. SPRAVATO [Suspect]
     Active Substance: ESKETAMINE
     Dosage: 84 MG, 2 TOTAL DOSES
     Dates: start: 20200622, end: 20200706
  2. SPRAVATO [Suspect]
     Active Substance: ESKETAMINE
     Indication: MAJOR DEPRESSION
     Dosage: 56 MG, 6 TOTAL DOSES
     Dates: start: 20200528, end: 20200615

REACTIONS (7)
  - Headache [Unknown]
  - Peripheral swelling [Unknown]
  - Fatigue [Unknown]
  - Withdrawal syndrome [Unknown]
  - Haematemesis [Unknown]
  - Hypersensitivity [Unknown]
  - Product dose omission issue [Unknown]

NARRATIVE: CASE EVENT DATE: 202007
